FAERS Safety Report 6276820-8 (Version None)
Quarter: 2009Q3

REPORT INFORMATION
  Report Type: 
  Country: None (occurrence: None)
  Receive Date: 20090722
  Receipt Date: 20081107
  Transmission Date: 20100115
  Serious: Yes (Other)
  Sender: FDA-Public Use
  Company Number: US-BRISTOL-MYERS SQUIBB COMPANY-14327977

PATIENT
  Age: 71 Year
  Sex: Female
  Weight: 55 kg

DRUGS (3)
  1. COUMADIN [Suspect]
     Dosage: STARTED FROM 1980 TO JUL 2008 (28YRS); INTERUPTED AND RESTARTED ON 23 JUL 2008
     Route: 048
     Dates: start: 19800101
  2. ENOXAPARIN SODIUM [Suspect]
     Dosage: ADDED LOT# 7589 EXPIRY DATE NOV 2010 TAKEN AS SC IN APR 2008
     Route: 058
     Dates: start: 20080716, end: 20080731
  3. ACETYLSALICYLIC ACID [Concomitant]

REACTIONS (5)
  - ANAEMIA [None]
  - CONTUSION [None]
  - INJECTION SITE HAEMORRHAGE [None]
  - INJECTION SITE NODULE [None]
  - WRONG TECHNIQUE IN DRUG USAGE PROCESS [None]
